FAERS Safety Report 10695416 (Version 1)
Quarter: 2014Q4

REPORT INFORMATION
  Report Type: Spontaneous
  Country: US (occurrence: None)
  Receive Date: 20141223
  Receipt Date: 20141223
  Transmission Date: 20150529
  Serious: No
  Sender: FDA-Public Use
  Company Number: 1000072668

PATIENT
  Age: 81 Year
  Sex: Male
  Weight: 170.5 kg

DRUGS (2)
  1. LINZESS [Suspect]
     Active Substance: LINACLOTIDE
     Indication: IRRITABLE BOWEL SYNDROME
     Dates: start: 201408
  2. REMERON [Suspect]
     Active Substance: MIRTAZAPINE

REACTIONS (1)
  - Anaemia [None]
